FAERS Safety Report 20034884 (Version 3)
Quarter: 2021Q4

REPORT INFORMATION
  Report Type: Spontaneous
  Country: CA (occurrence: CA)
  Receive Date: 20211104
  Receipt Date: 20211217
  Transmission Date: 20220303
  Serious: Yes (Other)
  Sender: FDA-Public Use
  Company Number: CA-PFIZER INC-202101440470

PATIENT
  Age: 26 Year
  Sex: Female

DRUGS (2)
  1. SULFASALAZINE [Suspect]
     Active Substance: SULFASALAZINE
     Indication: Psoriatic arthropathy
     Dosage: 1000 MG, 2X/DAY
     Route: 048
     Dates: start: 202109
  2. CORTISONE [Concomitant]
     Active Substance: CORTISONE
     Dosage: 20 MG, 1X/DAY
     Dates: start: 20211015

REACTIONS (16)
  - Ear infection [Not Recovered/Not Resolved]
  - Urinary tract infection bacterial [Unknown]
  - Escherichia infection [Unknown]
  - Off label use [Unknown]
  - Generalised oedema [Unknown]
  - Oedema peripheral [Unknown]
  - Joint range of motion decreased [Unknown]
  - Movement disorder [Unknown]
  - Gait disturbance [Unknown]
  - Sleep disorder [Unknown]
  - Pain [Unknown]
  - Headache [Not Recovered/Not Resolved]
  - Sinus pain [Not Recovered/Not Resolved]
  - Rhinorrhoea [Not Recovered/Not Resolved]
  - Peripheral swelling [Not Recovered/Not Resolved]
  - Joint swelling [Not Recovered/Not Resolved]

NARRATIVE: CASE EVENT DATE: 20210101
